FAERS Safety Report 4382737-6 (Version None)
Quarter: 2004Q2

REPORT INFORMATION
  Report Type: 
  Country: None (occurrence: None)
  Receive Date: 20040617
  Receipt Date: 20040603
  Transmission Date: 20050107
  Serious: Yes (Hospitalization, Other)
  Sender: FDA-Public Use
  Company Number: 237378

PATIENT
  Age: 83 Year
  Sex: Female
  Weight: 55 kg

DRUGS (2)
  1. VAGIFEM [Suspect]
     Indication: OESTROGEN DEFICIENCY
     Dosage: VAGINAL
     Route: 067
     Dates: start: 19980921, end: 20040521
  2. CLOTRIMAZOLE (CLOTRIMAZOLE) [Concomitant]

REACTIONS (1)
  - ENDOMETRIAL CANCER [None]
